FAERS Safety Report 7904748-3 (Version None)
Quarter: 2011Q4

REPORT INFORMATION
  Report Type: 
  Country: None (occurrence: None)
  Receive Date: 20111109
  Receipt Date: 20111031
  Transmission Date: 20120403
  Serious: Yes (Hospitalization)
  Sender: FDA-Public Use
  Company Number: US-BAYER-2011-048481

PATIENT
  Age: 23 Year
  Sex: Female
  Weight: 74.83 kg

DRUGS (7)
  1. YAZ [Suspect]
     Indication: ACNE
     Dosage: UNK
     Dates: start: 20070101, end: 20090101
  2. AMOXICILLIN [Concomitant]
  3. CEPHALEXIN [Concomitant]
  4. ANTIBIOTICS [Concomitant]
     Indication: THROMBOPHLEBITIS SUPERFICIAL
  5. IBUPROFEN [Concomitant]
  6. OXYCODONE HCL AND ACETAMINOPHEN [Concomitant]
  7. SULFAMETHOXAZOLE AND TRIMETHOPRIM DOUBLE STRENGTH [Concomitant]

REACTIONS (4)
  - DEEP VEIN THROMBOSIS [None]
  - PAIN [None]
  - THROMBOSIS [None]
  - INJURY [None]
